FAERS Safety Report 15680330 (Version 2)
Quarter: 2018Q4

REPORT INFORMATION
  Report Type: Spontaneous
  Country: ZA (occurrence: ZA)
  Receive Date: 20181203
  Receipt Date: 20181210
  Transmission Date: 20190205
  Serious: Yes (Hospitalization, Other)
  Sender: FDA-Public Use
  Company Number: ZA-PFIZER INC-2018491363

PATIENT
  Age: 50 Year
  Sex: Male

DRUGS (7)
  1. ADCO DAPAMAX [Suspect]
     Active Substance: INDAPAMIDE
     Dosage: 2.5 MG, UNK
  2. ECOTRIN [Suspect]
     Active Substance: ASPIRIN
     Dosage: 81 MG, UNK
  3. VEDIBLOK [Suspect]
     Active Substance: CARVEDILOL
     Dosage: 25 MG, UNK
  4. GLUCOPHAGE XR [Suspect]
     Active Substance: METFORMIN HYDROCHLORIDE
     Dosage: 500 MG, UNK
  5. BIO NIFEDIPINE XL [Suspect]
     Active Substance: NIFEDIPINE
     Dosage: 300 MG, UNK
  6. ZARTAN [Suspect]
     Active Substance: LOSARTAN POTASSIUM
     Dosage: 100 MG, UNK
  7. ASPAVOR [Suspect]
     Active Substance: ATORVASTATIN
     Dosage: 20 MG, 1X/DAY

REACTIONS (2)
  - Cerebrovascular accident [Recovering/Resolving]
  - Hypoacusis [Unknown]

NARRATIVE: CASE EVENT DATE: 20181007
